FAERS Safety Report 22591811 (Version 1)
Quarter: 2023Q2

REPORT INFORMATION
  Report Type: Spontaneous
  Country: US (occurrence: US)
  Receive Date: 20230612
  Receipt Date: 20230612
  Transmission Date: 20230722
  Serious: No
  Sender: FDA-Public Use
  Company Number: US-RIGEL PHARMACEUTICALS, INC.- 2023FOS000161

PATIENT
  Sex: Male
  Weight: 100.23 kg

DRUGS (1)
  1. TAVALISSE [Suspect]
     Active Substance: FOSTAMATINIB
     Indication: Immune thrombocytopenia
     Dosage: 150 MILLIGRAM, BID
     Route: 048
     Dates: start: 20220722

REACTIONS (3)
  - COVID-19 [Not Recovered/Not Resolved]
  - Taste disorder [Not Recovered/Not Resolved]
  - Prostatic operation [Unknown]

NARRATIVE: CASE EVENT DATE: 20230101
